FAERS Safety Report 22539105 (Version 1)
Quarter: 2023Q2

REPORT INFORMATION
  Report Type: Report from Study
  Country: US (occurrence: US)
  Receive Date: 20230609
  Receipt Date: 20230609
  Transmission Date: 20230722
  Serious: Yes (Hospitalization, Other)
  Sender: FDA-Public Use
  Company Number: US-GILEAD-2023-0631854

PATIENT
  Age: 39 Year
  Sex: Male

DRUGS (29)
  1. AZTREONAM LYSINE [Suspect]
     Active Substance: AZTREONAM LYSINE
     Indication: Product used for unknown indication
     Dosage: 75 MG, TID (QOM)
     Route: 055
  2. ACETAMINOPHEN\DIPHENHYDRAMINE HYDROCHLORIDE [Concomitant]
     Active Substance: ACETAMINOPHEN\DIPHENHYDRAMINE HYDROCHLORIDE
  3. ALBUTEROL SULFATE [Concomitant]
     Active Substance: ALBUTEROL SULFATE
  4. DIAZEPAM [Concomitant]
     Active Substance: DIAZEPAM
  5. DIVALPREX [Concomitant]
  6. PULMOZYME [Concomitant]
     Active Substance: DORNASE ALFA
  7. EPIPEN [Concomitant]
     Active Substance: EPINEPHRINE
  8. FLOVENT [Concomitant]
     Active Substance: FLUTICASONE PROPIONATE
  9. FUROSEMIDE [Concomitant]
     Active Substance: FUROSEMIDE
  10. HYDROCORTISONE [Concomitant]
     Active Substance: HYDROCORTISONE
  11. LANSOPRAZOLE [Concomitant]
     Active Substance: LANSOPRAZOLE
  12. LORATADINE [Concomitant]
     Active Substance: LORATADINE
  13. PEG 3350 [Concomitant]
     Active Substance: POLYETHYLENE GLYCOL 3350
  14. POTASSIUM [Concomitant]
     Active Substance: POTASSIUM
  15. LEVOTHYROXINE [Concomitant]
     Active Substance: LEVOTHYROXINE
  16. CALTRATE [CALCIUM CARBONATE;COLECALCIFEROL] [Concomitant]
  17. VITAMIN D3 [Concomitant]
     Active Substance: CHOLECALCIFEROL
  18. FERROUS SULFATE [Concomitant]
     Active Substance: FERROUS SULFATE
  19. LORAZEPAM [Concomitant]
     Active Substance: LORAZEPAM
  20. NYSTATIN [Concomitant]
     Active Substance: NYSTATIN
  21. MELATONIN [Concomitant]
     Active Substance: MELATONIN
  22. ASCORBIC ACID [Concomitant]
     Active Substance: ASCORBIC ACID
  23. AZITHROMYCIN [Concomitant]
     Active Substance: AZITHROMYCIN
  24. BUSPIRONE HYDROCHLORIDE [Concomitant]
     Active Substance: BUSPIRONE HYDROCHLORIDE
  25. CITALOPRAM [Concomitant]
     Active Substance: CITALOPRAM HYDROBROMIDE
  26. DEXAMETHASONE [Concomitant]
     Active Substance: DEXAMETHASONE
  27. FLUTICASONE [Concomitant]
     Active Substance: FLUTICASONE
  28. TRIAMCINOLONE ACETONIDE [Concomitant]
     Active Substance: TRIAMCINOLONE ACETONIDE
  29. MUPIROCIN [Concomitant]
     Active Substance: MUPIROCIN

REACTIONS (2)
  - Pneumonia [Recovered/Resolved]
  - Blood urine present [Recovered/Resolved]

NARRATIVE: CASE EVENT DATE: 20230401
